FAERS Safety Report 20846489 (Version 1)
Quarter: 2022Q2

REPORT INFORMATION
  Report Type: Spontaneous
  Country: CH (occurrence: CH)
  Receive Date: 20220518
  Receipt Date: 20220518
  Transmission Date: 20220720
  Serious: Yes (Hospitalization, Other)
  Sender: FDA-Public Use
  Company Number: None

PATIENT
  Age: 83 Year
  Sex: Male

DRUGS (6)
  1. XARELTO [Interacting]
     Active Substance: RIVAROXABAN
     Indication: Product used for unknown indication
     Dosage: 20 MG, UNK
     Route: 048
     Dates: end: 20220113
  2. TEGRETOL [Interacting]
     Active Substance: CARBAMAZEPINE
     Dosage: 200 MG, UNK
     Route: 048
     Dates: end: 20220111
  3. CORDARONE [Concomitant]
     Active Substance: AMIODARONE HYDROCHLORIDE
  4. EXFORGE HCT [Concomitant]
     Active Substance: AMLODIPINE BESYLATE\HYDROCHLOROTHIAZIDE\VALSARTAN
  5. NOVALGIN (METAMIZOLE SODIUM) [Concomitant]
     Active Substance: METAMIZOLE SODIUM
     Dates: end: 20220111
  6. DAFALGAN [Concomitant]
     Active Substance: ACETAMINOPHEN

REACTIONS (2)
  - Ischaemic cerebral infarction [Recovering/Resolving]
  - Drug interaction [Recovering/Resolving]

NARRATIVE: CASE EVENT DATE: 20210109
